FAERS Safety Report 17485725 (Version 1)
Quarter: 2020Q1

REPORT INFORMATION
  Report Type: Spontaneous
  Country: DE (occurrence: DE)
  Receive Date: 20200302
  Receipt Date: 20200302
  Transmission Date: 20200409
  Serious: Yes (Other)
  Sender: FDA-Public Use
  Company Number: DE-TEVA-2020-DE-1193715

PATIENT
  Age: 81 Year
  Sex: Male
  Weight: 82 kg

DRUGS (7)
  1. HALOPERIDOL. [Suspect]
     Active Substance: HALOPERIDOL
     Indication: SEDATION
     Dosage: 0.25 MG
     Route: 040
     Dates: start: 20191122
  2. PIPERACILLIN/TAZOBACTAM [Concomitant]
     Active Substance: PIPERACILLIN SODIUM\TAZOBACTAM SODIUM
     Dates: start: 20191123, end: 20191126
  3. PANTOZOL [Concomitant]
     Active Substance: PANTOPRAZOLE SODIUM
     Dosage: 40 MILLIGRAM DAILY; DAILY DOSE: 40 MG MILLGRAM(S) EVERY DAYS
     Route: 042
     Dates: start: 20191204, end: 20191208
  4. DEXMEDETOMIDIN [Concomitant]
     Indication: SEDATION
     Route: 042
     Dates: start: 20191204, end: 20191208
  5. PIPERACILLIN/TAZOBACTAM [Concomitant]
     Active Substance: PIPERACILLIN SODIUM\TAZOBACTAM SODIUM
     Dates: start: 20191130, end: 20191208
  6. METAMIZOL 1G [Concomitant]
     Indication: PAIN
     Dosage: DAILY DOSE: 4 DF DOSAGE FORM EVERY DAYS 4 SEPARATED DOSES
     Route: 042
     Dates: start: 20190120, end: 20191208
  7. ACC 300 [Concomitant]
     Indication: PROPHYLAXIS
     Dosage: DAILY DOSE: 3 DF DOSAGE FORM EVERY DAYS 3 SEPARATED DOSES
     Route: 042
     Dates: start: 20191204, end: 20191208

REACTIONS (1)
  - Atrial fibrillation [Unknown]

NARRATIVE: CASE EVENT DATE: 20191122
